FAERS Safety Report 5581295-8 (Version None)
Quarter: 2008Q1

REPORT INFORMATION
  Report Type: 
  Country: None (occurrence: None)
  Receive Date: 20080104
  Receipt Date: 20071227
  Transmission Date: 20080703
  Serious: Yes (Other)
  Sender: FDA-Public Use
  Company Number: DE-JNJFOC-20080100114

PATIENT
  Age: 54 Year
  Weight: 60 kg

DRUGS (1)
  1. REMICADE [Suspect]
     Indication: DRUG USE FOR UNKNOWN INDICATION
     Route: 042

REACTIONS (4)
  - CHEST DISCOMFORT [None]
  - FEAR OF DEATH [None]
  - INFUSION RELATED REACTION [None]
  - PANIC DISORDER [None]
